FAERS Safety Report 5390045-X (Version None)
Quarter: 2007Q3

REPORT INFORMATION
  Report Type: 
  Country: None (occurrence: None)
  Receive Date: 20070713
  Receipt Date: 20070627
  Transmission Date: 20080115
  Serious: Yes (Other)
  Sender: FDA-Public Use
  Company Number: DSA_30169_2007

PATIENT
  Sex: Female

DRUGS (3)
  1. LORAX /00273201/ (LORAX) 1 MG [Suspect]
     Indication: DEMENTIA ALZHEIMER'S TYPE
     Dosage: 1 MG QD ORAL
     Route: 048
     Dates: start: 20060601
  2. LORAX /00273201/ (LORAX) 1 MG [Suspect]
     Indication: DEPRESSION
     Dosage: 1 MG QD ORAL
     Route: 048
     Dates: start: 20060601
  3. MEMANTINE HCL [Concomitant]

REACTIONS (2)
  - GAIT DISTURBANCE [None]
  - SPEECH DISORDER [None]
